FAERS Safety Report 19517678 (Version 1)
Quarter: 2021Q3

REPORT INFORMATION
  Report Type: Report from Study
  Country: US (occurrence: US)
  Receive Date: 20210712
  Receipt Date: 20210712
  Transmission Date: 20211014
  Serious: Yes (Other)
  Sender: FDA-Public Use
  Company Number: NVSC2021US141412

PATIENT
  Age: 79 Year
  Sex: Male

DRUGS (1)
  1. ENTRESTO [Suspect]
     Active Substance: SACUBITRIL\VALSARTAN
     Indication: PRODUCT USED FOR UNKNOWN INDICATION
     Dosage: UNK
     Route: 065

REACTIONS (8)
  - Bladder cancer [Unknown]
  - Lethargy [Unknown]
  - Skin irritation [Unknown]
  - Dizziness [Not Recovered/Not Resolved]
  - Burning sensation [Unknown]
  - Back injury [Unknown]
  - Back pain [Unknown]
  - Asthenia [Unknown]
